FAERS Safety Report 6169273-1 (Version None)
Quarter: 2009Q2

REPORT INFORMATION
  Report Type: 
  Country: None (occurrence: None)
  Receive Date: 20090424
  Receipt Date: 20090415
  Transmission Date: 20091009
  Serious: Yes (Other)
  Sender: FDA-Public Use
  Company Number: 2009-01180

PATIENT
  Age: 85 Year
  Sex: Male
  Weight: 61.2 kg

DRUGS (8)
  1. VELCADE [Suspect]
     Indication: MULTIPLE MYELOMA
     Dosage: 1.3 MG/M2, INTRAVENOUS
     Route: 042
     Dates: start: 20090209, end: 20090323
  2. MELPHALAN (MELPHALAN) [Suspect]
     Indication: MULTIPLE MYELOMA
     Dates: start: 20090201
  3. PREDNISONE TAB [Suspect]
     Indication: MULTIPLE MYELOMA
     Dates: start: 20090201
  4. ENALAPRIL MALEATE [Concomitant]
  5. ZOCOR [Concomitant]
  6. TOPROL-XL [Concomitant]
  7. LASIX [Concomitant]
  8. GLUCOTROL [Concomitant]

REACTIONS (8)
  - ACUTE FEBRILE NEUTROPHILIC DERMATOSIS [None]
  - AZOTAEMIA [None]
  - DIARRHOEA [None]
  - INFLAMMATION [None]
  - MUSCULAR WEAKNESS [None]
  - PETECHIAE [None]
  - TESTICULAR SWELLING [None]
  - VISION BLURRED [None]
